FAERS Safety Report 25776318 (Version 1)
Quarter: 2025Q3

REPORT INFORMATION
  Report Type: Spontaneous
  Country: US (occurrence: US)
  Receive Date: 20250909
  Receipt Date: 20250909
  Transmission Date: 20251021
  Serious: No
  Sender: DOMPE FARMACEUTICI
  Company Number: US-FARMAPROD-202502-0578

PATIENT
  Sex: Male
  Weight: 86.18 kg

DRUGS (18)
  1. OXERVATE [Suspect]
     Active Substance: CENEGERMIN-BKBJ
     Indication: Neurotrophic keratopathy
     Route: 047
     Dates: start: 20250114
  2. OXERVATE [Suspect]
     Active Substance: CENEGERMIN-BKBJ
     Indication: Hypoaesthesia eye
  3. OXERVATE [Suspect]
     Active Substance: CENEGERMIN-BKBJ
     Indication: Glaucoma
  4. VIAGRA [Concomitant]
     Active Substance: SILDENAFIL CITRATE
  5. BRIMONIDINE TARTRATE [Concomitant]
     Active Substance: BRIMONIDINE TARTRATE
  6. METOPROLOL SUCCINATE [Concomitant]
     Active Substance: METOPROLOL SUCCINATE
  7. TYRVAYA [Concomitant]
     Active Substance: VARENICLINE TARTRATE
  8. RESTASIS [Concomitant]
     Active Substance: CYCLOSPORINE
  9. LUMIGAN [Concomitant]
     Active Substance: BIMATOPROST
  10. SIMVASTATIN [Concomitant]
     Active Substance: SIMVASTATIN
  11. SODIUM CHLORIDE [Concomitant]
     Active Substance: SODIUM CHLORIDE
  12. DOXYCYCLINE HYCLATE [Concomitant]
     Active Substance: DOXYCYCLINE HYCLATE
  13. VITAMIN B12 [Concomitant]
     Active Substance: CYANOCOBALAMIN
  14. ELIQUIS [Concomitant]
     Active Substance: APIXABAN
  15. GAS-X [Concomitant]
     Active Substance: DIMETHICONE
  16. XDEMVY [Concomitant]
     Active Substance: LOTILANER
  17. VITAL TEARS [Concomitant]
  18. MIEBO [Concomitant]
     Active Substance: PERFLUOROHEXYLOCTANE

REACTIONS (3)
  - Eye pain [Not Recovered/Not Resolved]
  - Vision blurred [Not Recovered/Not Resolved]
  - Off label use [Unknown]
